FAERS Safety Report 9953937 (Version 1)
Quarter: 2014Q1

REPORT INFORMATION
  Report Type: Spontaneous
  Country: US (occurrence: US)
  Receive Date: 20140304
  Receipt Date: 20140304
  Transmission Date: 20141002
  Serious: No
  Sender: FDA-Public Use
  Company Number: US-PFIZER INC-2014057175

PATIENT
  Age: 37 Year
  Sex: Male
  Weight: 76.19 kg

DRUGS (8)
  1. WELCHOL [Concomitant]
     Indication: ABDOMINAL DISCOMFORT
     Dosage: 500 MG, 3X/DAY
  2. LYRICA [Suspect]
     Indication: DIABETIC NEUROPATHY
     Dosage: 300 MG, 2X/DAY
     Route: 048
  3. LANTUS [Concomitant]
     Indication: DIABETES MELLITUS
     Dosage: 10 MG, 1X/DAY
  4. NOVOLOG [Concomitant]
     Indication: DIABETES MELLITUS
     Dosage: UNK
  5. PAXIL [Concomitant]
     Indication: DEPRESSION
     Dosage: 25 MG, 1X/DAY
  6. LISINOPRIL [Concomitant]
     Indication: HYPERTENSION
     Dosage: 10 MG, 1X/DAY
  7. IBUPROFEN [Concomitant]
     Indication: HEADACHE
     Dosage: 800 MG, 3X/DAY
  8. IBUPROFEN [Concomitant]
     Indication: INFLAMMATION

REACTIONS (4)
  - Intentional drug misuse [Unknown]
  - Poor quality drug administered [Unknown]
  - Drug ineffective [Unknown]
  - Product physical issue [Unknown]
